FAERS Safety Report 4452828-X (Version None)
Quarter: 2004Q3

REPORT INFORMATION
  Report Type: 
  Country: None (occurrence: None)
  Receive Date: 20040813
  Receipt Date: 20040428
  Transmission Date: 20050211
  Serious: No
  Sender: FDA-Public Use
  Company Number: S04-USA-03274-01

PATIENT
  Age: 80 Year
  Sex: Female

DRUGS (5)
  1. NAMENDA [Suspect]
     Indication: VASCULAR DEMENTIA
     Dosage: 5 MG QD PO
     Route: 048
     Dates: start: 20040425, end: 20040427
  2. ARICEPT [Concomitant]
  3. CELEXA [Concomitant]
  4. TOPROL-XL [Concomitant]
  5. LEVOXYL [Concomitant]

REACTIONS (3)
  - CONFUSIONAL STATE [None]
  - HEADACHE [None]
  - HYPERSOMNIA [None]
